FAERS Safety Report 20760116 (Version 1)
Quarter: 2022Q2

REPORT INFORMATION
  Report Type: Spontaneous
  Country: US (occurrence: US)
  Receive Date: 20220428
  Receipt Date: 20220428
  Transmission Date: 20220721
  Serious: No
  Sender: FDA-Public Use
  Company Number: US-ENDO PHARMACEUTICALS INC-2022-000416

PATIENT
  Sex: Female

DRUGS (1)
  1. QWO [Suspect]
     Active Substance: COLLAGENASE CLOSTRIDIUM HISTOLYTICUM-AAES
     Indication: Cellulite
     Dosage: UNK UNKNOWN, UNKNOWN (12 INJECTIONS)
     Route: 065
     Dates: start: 202112

REACTIONS (5)
  - Atrophy [Unknown]
  - Nodule [Not Recovered/Not Resolved]
  - Skin discolouration [Unknown]
  - Contusion [Not Recovered/Not Resolved]
  - Off label use [Unknown]
